FAERS Safety Report 18879414 (Version 1)
Quarter: 2021Q1

REPORT INFORMATION
  Report Type: Other
  Country: TR (occurrence: TR)
  Receive Date: 20210211
  Receipt Date: 20210211
  Transmission Date: 20210420
  Serious: Yes (Life-Threatening, Hospitalization, Other)
  Sender: FDA-Public Use
  Company Number: TR-EMD SERONO-9217237

PATIENT
  Age: 21 Year
  Sex: Female

DRUGS (2)
  1. METFORMIN [Suspect]
     Active Substance: METFORMIN HYDROCHLORIDE
     Indication: SUICIDAL IDEATION
     Dosage: APPROXIMATELY 50 PILLS
  2. FENYRAMIDOL [Suspect]
     Active Substance: PHENYRAMIDOL
     Indication: SUICIDAL IDEATION
     Dosage: APPROXIMATELY 50 PILLS

REACTIONS (8)
  - Rhabdomyolysis [Unknown]
  - Suicide attempt [Unknown]
  - Intentional overdose [Unknown]
  - Toxicity to various agents [Unknown]
  - Haemolytic anaemia [Recovered/Resolved]
  - Peripheral nerve injury [Recovering/Resolving]
  - Acute kidney injury [Recovered/Resolved]
  - Compartment syndrome [Unknown]
